FAERS Safety Report 5620145-8 (Version None)
Quarter: 2008Q1

REPORT INFORMATION
  Report Type: 
  Country: None (occurrence: None)
  Receive Date: 20080208
  Receipt Date: 20080129
  Transmission Date: 20080703
  Serious: Yes (Other)
  Sender: FDA-Public Use
  Company Number: JP-ROCHE-545116

PATIENT
  Age: 26 Year
  Sex: Male
  Weight: 54 kg

DRUGS (6)
  1. TAMIFLU [Suspect]
     Route: 048
     Dates: start: 20080105, end: 20080109
  2. LOXONIN [Concomitant]
     Dosage: TAKEN AS NEEDED
     Route: 048
     Dates: start: 20080105
  3. SELBEX [Concomitant]
     Dosage: FORM REPORTED AS FINE GRANULES
     Route: 048
     Dates: start: 20080105
  4. FLOMOX [Concomitant]
     Route: 048
     Dates: start: 20080109
  5. DASEN [Concomitant]
     Route: 048
     Dates: start: 20080109
  6. MUCOSTA [Concomitant]
     Route: 048
     Dates: start: 20080109

REACTIONS (1)
  - FACIAL PALSY [None]
